FAERS Safety Report 6306366-X (Version None)
Quarter: 2009Q3

REPORT INFORMATION
  Report Type: 
  Country: None (occurrence: None)
  Receive Date: 20090812
  Receipt Date: 20090804
  Transmission Date: 20100115
  Serious: Yes (Death, Hospitalization)
  Sender: FDA-Public Use
  Company Number: US-AVENTIS-200916908US

PATIENT
  Sex: Female
  Weight: 123 kg

DRUGS (9)
  1. LOVENOX [Suspect]
     Dates: start: 20090718, end: 20090701
  2. LOVENOX [Suspect]
     Dates: end: 20090723
  3. LOVENOX [Suspect]
     Dates: start: 20090723, end: 20090724
  4. COUMADIN [Suspect]
  5. MORPHINE [Concomitant]
     Dosage: DOSE: UNK
  6. LORAZEPAM [Concomitant]
     Dosage: DOSE: UNK
  7. SYNTHROID [Concomitant]
     Dosage: DOSE: UNK
  8. COMPAZINE [Concomitant]
     Dosage: DOSE: UNK
  9. TYLENOL (CAPLET) [Concomitant]
     Dosage: DOSE: UNK

REACTIONS (2)
  - INTERNATIONAL NORMALISED RATIO INCREASED [None]
  - RETROPERITONEAL HAEMORRHAGE [None]
